FAERS Safety Report 24995800 (Version 1)
Quarter: 2025Q1

REPORT INFORMATION
  Report Type: Spontaneous
  Country: IL (occurrence: IL)
  Receive Date: 20250221
  Receipt Date: 20250221
  Transmission Date: 20250408
  Serious: Yes (Hospitalization, Other)
  Sender: TEVA
  Company Number: IL-TEVA-VS-3299668

PATIENT
  Age: 56 Year
  Sex: Male

DRUGS (3)
  1. PACLITAXEL [Suspect]
     Active Substance: PACLITAXEL
     Indication: Non-small cell lung cancer
     Dosage: 500CC(ML) DRUG DOSAGE: 390 MG,DURATION: 3 HOURS TOTAL VOLUME: 500 CC CONTINUOUS;I.V. PACLITAXEL 3...
     Route: 042
  2. CISPLATIN [Suspect]
     Active Substance: CISPLATIN
     Indication: Non-small cell lung cancer
     Dosage: 500CC(ML) DRUG DOSAGE: 90 MG;DURATION: 1 HOUR TOTAL VOLUME: 1000 CC(ML) CONTINUOUS;I.V. CISPLATIN...
     Route: 042
  3. NIVOLUMAB [Suspect]
     Active Substance: NIVOLUMAB
     Indication: Non-small cell lung cancer stage IIIA
     Dosage: QW3
     Route: 065

REACTIONS (6)
  - Neuropathy peripheral [Not Recovered/Not Resolved]
  - Decubitus ulcer [Recovering/Resolving]
  - Sepsis [Recovered/Resolved]
  - Osteomyelitis [Recovered/Resolved]
  - Dysphonia [Unknown]
  - Vocal cord paralysis [Unknown]
